FAERS Safety Report 8538695-3 (Version None)
Quarter: 2012Q3

REPORT INFORMATION
  Report Type: 
  Country: None (occurrence: None)
  Receive Date: 20120726
  Receipt Date: 20120716
  Transmission Date: 20120928
  Serious: Yes (Other)
  Sender: FDA-Public Use
  Company Number: US-BAYER-2012-022461

PATIENT
  Age: 17 Year
  Sex: Female
  Weight: 46.712 kg

DRUGS (15)
  1. METRONIDAZOLE [Concomitant]
     Dosage: 500 MG TABLETS, UNK
  2. TRIAMCINOLONE [Concomitant]
     Dosage: 0.025 % OINTMENT, UNK
  3. MELOXICAM [Concomitant]
     Dosage: 7.5 MG TABLETS
  4. DICYCLOMINE [Concomitant]
     Dosage: 10 MG CAPSULES UNK
  5. ERYTHROMYCIN [Concomitant]
     Dosage: 2 % SOLUTION, UNK
  6. YAZ [Suspect]
     Indication: CONTRACEPTION
     Dosage: UNK
     Dates: start: 20081101, end: 20100601
  7. YAZ [Suspect]
     Indication: ACNE
  8. IBUPROFEN [Concomitant]
     Dosage: UNK, AS NEEDED
  9. AMERGE [Concomitant]
     Dosage: 1 MG, TABLET
  10. BUTALBITAL ACETAMINOPHEN AND CAFFEINE [Concomitant]
     Dosage: UNK
  11. PROMETHAZINE [Concomitant]
     Dosage: 25 MG TABLETS
  12. TOPIRAMATE [Concomitant]
     Dosage: 50 MG TABLETS, UNK
  13. YAZ [Suspect]
     Indication: PREMENSTRUAL SYNDROME
  14. LOHIST-D [Concomitant]
     Dosage: 6-45 MG TABLETS
  15. PRILOSEC [Concomitant]
     Dosage: UNK

REACTIONS (8)
  - PAIN [None]
  - INJURY [None]
  - NAUSEA [None]
  - GALLBLADDER DISORDER [None]
  - CHOLECYSTITIS CHRONIC [None]
  - EMOTIONAL DISTRESS [None]
  - GENERAL PHYSICAL HEALTH DETERIORATION [None]
  - ANXIETY [None]
